FAERS Safety Report 9686673 (Version 1)
Quarter: 2013Q4

REPORT INFORMATION
  Report Type: Spontaneous
  Country: US (occurrence: US)
  Receive Date: 20131113
  Receipt Date: 20131113
  Transmission Date: 20140711
  Serious: No
  Sender: FDA-Public Use
  Company Number: US-BAYER-2013-134386

PATIENT
  Age: 60 Year
  Sex: Male
  Weight: 85.26 kg

DRUGS (2)
  1. ALEVE LIQUID GELS [Suspect]
     Dosage: 1 DF, PRN
     Route: 048
     Dates: end: 20131030
  2. ALEVE TABLET [Suspect]
     Route: 048

REACTIONS (1)
  - Hyperhidrosis [Recovered/Resolved]
